FAERS Safety Report 21523869 (Version 2)
Quarter: 2022Q4

REPORT INFORMATION
  Report Type: Report from Study
  Country: US (occurrence: US)
  Receive Date: 20221029
  Receipt Date: 20221029
  Transmission Date: 20230112
  Serious: Yes (Hospitalization)
  Sender: FDA-Public Use
  Company Number: US-TAKEDA-2022TUS077816

PATIENT
  Age: 59 Year
  Sex: Female

DRUGS (35)
  1. TEDUGLUTIDE [Suspect]
     Active Substance: TEDUGLUTIDE
     Indication: Short-bowel syndrome
     Dosage: UNK
     Route: 042
  2. TEDUGLUTIDE [Suspect]
     Active Substance: TEDUGLUTIDE
     Indication: Short-bowel syndrome
     Dosage: UNK
     Route: 042
  3. TEDUGLUTIDE [Suspect]
     Active Substance: TEDUGLUTIDE
     Indication: Short-bowel syndrome
     Dosage: UNK
     Route: 042
  4. TEDUGLUTIDE [Suspect]
     Active Substance: TEDUGLUTIDE
     Indication: Short-bowel syndrome
     Dosage: UNK
     Route: 042
  5. KETOROLAC [Concomitant]
     Active Substance: KETOROLAC TROMETHAMINE
     Indication: Pain
     Dosage: 15 MILLIGRAM
     Route: 058
     Dates: start: 20201015, end: 20201016
  6. LATANOPROST [Concomitant]
     Active Substance: LATANOPROST
     Indication: Glaucoma
     Dosage: 5 PERCENT, QD
     Route: 047
     Dates: start: 20210126
  7. HEPARIN [Concomitant]
     Active Substance: HEPARIN SODIUM
     Indication: Anticoagulant therapy
     Dosage: 5000 INTERNATIONAL UNIT, Q8HR
     Route: 058
     Dates: start: 20190517, end: 20190606
  8. HYDROMORPHONE [Concomitant]
     Active Substance: HYDROMORPHONE
     Indication: Pain
     Dosage: 1 MILLIGRAM, SINGLE
     Dates: start: 20190517, end: 20190517
  9. ACETAMINOPHEN [Concomitant]
     Active Substance: ACETAMINOPHEN
     Indication: Pain
     Dosage: 650 MILLIGRAM
     Route: 042
     Dates: start: 20201015, end: 20201016
  10. ACETAMINOPHEN [Concomitant]
     Active Substance: ACETAMINOPHEN
     Indication: Pyrexia
     Dosage: 1000 MILLIGRAM
     Dates: start: 20201011, end: 20201012
  11. ACETAMINOPHEN [Concomitant]
     Active Substance: ACETAMINOPHEN
     Indication: Abdominal pain
  12. ELAVIL [Concomitant]
     Active Substance: AMITRIPTYLINE HYDROCHLORIDE
     Indication: Insomnia
     Dosage: 15 MILLIGRAM, QD
     Route: 048
     Dates: start: 20201015
  13. BACLOFEN [Concomitant]
     Active Substance: BACLOFEN
     Indication: Abdominal pain
     Dosage: 10 MILLIGRAM
     Route: 048
     Dates: start: 20180521, end: 20190826
  14. BACLOFEN [Concomitant]
     Active Substance: BACLOFEN
     Indication: Enterocutaneous fistula
     Dosage: 10 MILLIGRAM
     Route: 048
     Dates: start: 20201015
  15. ROCEPHIN [Concomitant]
     Active Substance: CEFTRIAXONE SODIUM
     Indication: Device related sepsis
     Dosage: 2 GRAM, QD
     Route: 042
     Dates: start: 20201015, end: 20201016
  16. LOPERAMIDE [Concomitant]
     Active Substance: LOPERAMIDE
     Indication: Diarrhoea
     Dosage: 1 MILLIGRAM, Q6HR
     Route: 048
     Dates: start: 20201015, end: 20201016
  17. Calazime [Concomitant]
     Indication: Product used for unknown indication
     Dosage: UNK
     Route: 061
     Dates: start: 20201014, end: 20201016
  18. CALCIUM CARBONATE [Concomitant]
     Active Substance: CALCIUM CARBONATE
     Indication: Abdominal pain
     Dosage: 500 MILLIGRAM
     Route: 048
     Dates: start: 20201014, end: 20201016
  19. OXYCODONE [Concomitant]
     Active Substance: OXYCODONE
     Indication: Pain
     Dosage: 5 MILLIGRAM
     Route: 048
     Dates: start: 20201014, end: 20201015
  20. POTASSIUM CHLORIDE [Concomitant]
     Active Substance: POTASSIUM CHLORIDE
     Indication: Dehydration
     Dosage: 20 UNK
     Route: 042
     Dates: start: 20201011, end: 20201015
  21. VANCOMYCIN [Concomitant]
     Active Substance: VANCOMYCIN
     Indication: Device related sepsis
     Dosage: 1 GRAM, Q12H
     Route: 042
     Dates: start: 20201011, end: 20201013
  22. CEFEPIME [Concomitant]
     Active Substance: CEFEPIME HYDROCHLORIDE
     Indication: Device related sepsis
     Dosage: 1 GRAM, Q12H
     Route: 058
     Dates: start: 20201011, end: 20201015
  23. MORPHINE SULFATE [Concomitant]
     Active Substance: MORPHINE SULFATE
     Indication: Abdominal pain
     Dosage: 4 MILLIGRAM, SINGLE
     Route: 058
     Dates: start: 20201011, end: 20201016
  24. ISOVUE [Concomitant]
     Active Substance: IOPAMIDOL
     Indication: Computerised tomogram
     Dosage: 100 MILLILITER, SINGLE
     Route: 042
     Dates: start: 20201011, end: 20201011
  25. DIFLUCAN [Concomitant]
     Active Substance: FLUCONAZOLE
     Indication: Vascular device infection
     Dosage: 100 MILLIGRAM
     Route: 042
     Dates: start: 20201011, end: 20201014
  26. ZOFRAN [Concomitant]
     Active Substance: ONDANSETRON HYDROCHLORIDE
     Indication: Nausea
     Dosage: 4 MILLIGRAM, QD
     Route: 058
     Dates: start: 20201011, end: 20201016
  27. SULFAMETHOXAZOLE AND TRIMETHOPRIM [Concomitant]
     Active Substance: SULFAMETHOXAZOLE\TRIMETHOPRIM
     Indication: Short-bowel syndrome
     Dosage: 160 MILLIGRAM
     Route: 048
     Dates: start: 20180726, end: 20181003
  28. LYRICA [Concomitant]
     Active Substance: PREGABALIN
     Indication: Enterocutaneous fistula
     Dosage: 75 MILLIGRAM, TID
     Route: 048
     Dates: start: 20180521
  29. PANTOPRAZOLE [Concomitant]
     Active Substance: PANTOPRAZOLE
     Indication: Short-bowel syndrome
     Dosage: 40 MILLIGRAM
     Route: 042
     Dates: start: 20170127, end: 20181003
  30. OXYCODONE AND ACETAMINOPHEN [Concomitant]
     Active Substance: ACETAMINOPHEN\OXYCODONE HYDROCHLORIDE
     Indication: Enterocutaneous fistula
     Dosage: 325 MILLIGRAM
     Route: 048
     Dates: start: 20180718, end: 20190425
  31. VITAMIN D [Concomitant]
     Active Substance: VITAMIN D NOS
     Indication: Hypovitaminosis
     Dosage: 5000 INTERNATIONAL UNIT, 1/WEEK
     Route: 048
     Dates: start: 20180723, end: 20181003
  32. DOCUSATE SODIUM [Concomitant]
     Active Substance: DOCUSATE SODIUM
     Indication: Short-bowel syndrome
     Dosage: 100 MILLIGRAM
     Route: 048
     Dates: start: 20170127, end: 20181003
  33. CICLOPIROX [Concomitant]
     Active Substance: CICLOPIROX
     Indication: Short-bowel syndrome
     Dosage: UNK
     Route: 061
     Dates: start: 20180814, end: 20190425
  34. BUPRENORPHINE [Concomitant]
     Active Substance: BUPRENORPHINE
     Indication: Short-bowel syndrome
     Dosage: 2 MILLIGRAM, QD
     Route: 060
     Dates: start: 20180812, end: 20190508
  35. AMPICILLIN [Concomitant]
     Active Substance: AMPICILLIN
     Indication: Short-bowel syndrome
     Dosage: 500 MILLIGRAM
     Route: 048
     Dates: start: 20180815, end: 20181003

REACTIONS (4)
  - Staphylococcal infection [Not Recovered/Not Resolved]
  - Urinary tract infection [Not Recovered/Not Resolved]
  - Candida infection [Not Recovered/Not Resolved]
  - COVID-19 [Not Recovered/Not Resolved]

NARRATIVE: CASE EVENT DATE: 20220801
